FAERS Safety Report 4296968-7 (Version None)
Quarter: 2004Q1

REPORT INFORMATION
  Report Type: 
  Country: None (occurrence: None)
  Receive Date: 20040213
  Receipt Date: 20040202
  Transmission Date: 20041129
  Serious: Yes (Other)
  Sender: FDA-Public Use
  Company Number: 2004007389

PATIENT
  Age: 82 Year
  Sex: Male

DRUGS (1)
  1. NEURONTIN [Suspect]
     Indication: EPILEPSY
     Dosage: 2400 MG (TID), ORAL
     Route: 048

REACTIONS (5)
  - CONDITION AGGRAVATED [None]
  - DRY MOUTH [None]
  - EPILEPSY [None]
  - GLOSSITIS [None]
  - SOMNOLENCE [None]
